FAERS Safety Report 13018411 (Version 2)
Quarter: 2017Q1

REPORT INFORMATION
  Report Type: Spontaneous
  Country: US (occurrence: US)
  Receive Date: 20161212
  Receipt Date: 20170113
  Transmission Date: 20170428
  Serious: Yes (Other)
  Sender: FDA-Public Use
  Company Number: US-GLAXOSMITHKLINE-US2016182261

PATIENT
  Age: 47 Year
  Sex: Female

DRUGS (4)
  1. PERDIEM FIBER GRANULES [Suspect]
     Active Substance: PSYLLIUM HUSK
     Indication: HIATUS HERNIA
     Dosage: UNK, A TSP IN WATER AS NEEDED
     Dates: start: 1989
  2. PERDIEM (SENNOSIDES A AND B) [Suspect]
     Active Substance: SENNOSIDES A AND B
     Indication: PRODUCT USED FOR UNKNOWN INDICATION
     Dosage: UNK
  3. BENEFIBER [Suspect]
     Active Substance: STARCH, WHEAT
     Indication: PRODUCT USED FOR UNKNOWN INDICATION
     Dosage: UNK
  4. MIRALAX [Concomitant]
     Active Substance: POLYETHYLENE GLYCOL 3350
     Indication: PRODUCT USED FOR UNKNOWN INDICATION
     Dosage: UNK

REACTIONS (4)
  - Gallbladder operation [Unknown]
  - Product quality issue [Unknown]
  - Off label use [Unknown]
  - Constipation [Unknown]

NARRATIVE: CASE EVENT DATE: 1993
